FAERS Safety Report 16535141 (Version 1)
Quarter: 2019Q3

REPORT INFORMATION
  Report Type: Spontaneous
  Country: US (occurrence: US)
  Receive Date: 20190705
  Receipt Date: 20190705
  Transmission Date: 20191004
  Serious: No
  Sender: FDA-Public Use
  Company Number: US-TEVA-2019-US-1069125

PATIENT

DRUGS (1)
  1. ZOCOR [Suspect]
     Active Substance: SIMVASTATIN
     Route: 065

REACTIONS (6)
  - Fibromyalgia [Unknown]
  - Gastrointestinal disorder [Unknown]
  - Malaise [Unknown]
  - Drug ineffective [Unknown]
  - Myalgia [Unknown]
  - Muscle spasms [Unknown]
